FAERS Safety Report 8496031-5 (Version None)
Quarter: 2012Q3

REPORT INFORMATION
  Report Type: 
  Country: None (occurrence: None)
  Receive Date: 20120709
  Receipt Date: 20120705
  Transmission Date: 20120928
  Serious: Yes (Hospitalization)
  Sender: FDA-Public Use
  Company Number: IT-ROCHE-1084927

PATIENT
  Sex: Female

DRUGS (2)
  1. VALIUM [Suspect]
     Indication: SUICIDE ATTEMPT
     Route: 048
     Dates: start: 20120630, end: 20120630
  2. CHARCOAL [Concomitant]

REACTIONS (1)
  - SOPOR [None]
